FAERS Safety Report 7141603-3 (Version None)
Quarter: 2010Q4

REPORT INFORMATION
  Report Type: 
  Country: None (occurrence: None)
  Receive Date: 20101117
  Receipt Date: 20100811
  Transmission Date: 20110411
  Serious: Yes (Hospitalization, Disabling, Other)
  Sender: FDA-Public Use
  Company Number: WAES 1008USA01285

PATIENT
  Age: 32 Year
  Sex: Male
  Weight: 75.2971 kg

DRUGS (22)
  1. ISENTRESS [Suspect]
     Indication: HIV INFECTION
     Dosage: 400 MG/BID/PO
     Route: 048
     Dates: start: 20100615, end: 20100712
  2. LISINOPRIL [Suspect]
     Indication: HYPERTENSION
     Dosage: 10 MG/AM/PO
     Route: 048
  3. ABILIFY [Concomitant]
  4. ADVAIR [Concomitant]
  5. EFFEXOR XR [Concomitant]
  6. HYDROCERIN CREAM [Concomitant]
  7. KALETRA [Concomitant]
  8. MIRAPEX [Concomitant]
  9. NORCO [Concomitant]
  10. PHENERGAN (DIBROMPROPAMIDINE ISE [Concomitant]
  11. PRAVACHOL [Concomitant]
  12. QVAR 40 [Concomitant]
  13. SEROQUEL [Concomitant]
  14. TRUVADA [Concomitant]
  15. VENTOLIN [Concomitant]
  16. GEMFIBROZIL [Concomitant]
  17. HYDROCHLOROTHIAZIDE [Concomitant]
  18. LOPEARMIDE HYDROCHLORIDE [Concomitant]
  19. OMEGA-3 MARINE TRIGLYCERIDES [Concomitant]
  20. PROMETHAZINE HYDROCHLORIDE [Concomitant]
  21. TENOFOVIR DISOPROXIL FUMARATE [Concomitant]
  22. VITAMINS (UNSPECIFIED) [Concomitant]

REACTIONS (2)
  - HYPOTENSION [None]
  - RENAL FAILURE ACUTE [None]
